FAERS Safety Report 7118810-9 (Version None)
Quarter: 2010Q4

REPORT INFORMATION
  Report Type: 
  Country: None (occurrence: None)
  Receive Date: 20101123
  Receipt Date: 20100824
  Transmission Date: 20110411
  Serious: No
  Sender: FDA-Public Use
  Company Number: US-KINGPHARMUSA00001-K201001069

PATIENT
  Age: 80 Year
  Sex: Female
  Weight: 70.748 kg

DRUGS (23)
  1. FLECTOR [Suspect]
     Indication: BACK PAIN
     Dosage: 3.5  PATCH, Q 12 HOURS
     Route: 061
     Dates: start: 20100701
  2. FLECTOR [Suspect]
     Indication: ARTHRITIS
  3. FLECTOR [Suspect]
     Indication: PAIN IN EXTREMITY
  4. FLECTOR [Suspect]
     Indication: SPINAL COLUMN STENOSIS
  5. VOLTAREN [Concomitant]
     Indication: PAIN IN EXTREMITY
     Dosage: UNK
  6. ALLEGRA [Concomitant]
     Indication: SEASONAL ALLERGY
     Dosage: UNK
  7. COLACE [Concomitant]
     Dosage: UNK
  8. LASIX [Concomitant]
     Dosage: UNK
  9. NASONEX [Concomitant]
     Indication: SEASONAL ALLERGY
     Dosage: UNK
  10. METFORMIN HYDROCHLORIDE [Concomitant]
     Indication: DIABETES MELLITUS
     Dosage: UNK
  11. NAMENDA [Concomitant]
     Indication: MEMORY IMPAIRMENT
     Dosage: UNK
  12. OSCAL [Concomitant]
     Dosage: UNK
  13. POTASSIUM CHLORIDE [Concomitant]
     Dosage: UNK
  14. VITAMIN B6 [Concomitant]
     Indication: NIGHT SWEATS
     Dosage: UNK
  15. BLACK COHOSH [Concomitant]
     Dosage: UNK
  16. VITAMIN E [Concomitant]
     Dosage: UNK
  17. ADVAIR DISKUS 100/50 [Concomitant]
     Indication: ASTHMA
     Dosage: UNK
  18. ARICEPT [Concomitant]
     Indication: MEMORY IMPAIRMENT
     Dosage: UNK
  19. SINGULAIR [Concomitant]
     Indication: SEASONAL ALLERGY
     Dosage: UNK
  20. SYNTHROID [Concomitant]
     Indication: HYPOTHYROIDISM
     Dosage: UNK
  21. LIPITOR [Concomitant]
     Indication: BLOOD CHOLESTEROL INCREASED
     Dosage: UNK
  22. FERROUS SULFATE [Concomitant]
     Indication: IRON DEFICIENCY
     Dosage: UNK
  23. LOTREL [Concomitant]
     Indication: HYPERTENSION
     Dosage: UNK

REACTIONS (2)
  - APPLICATION SITE ECZEMA [None]
  - APPLICATION SITE RASH [None]
